FAERS Safety Report 14684860 (Version 1)
Quarter: 2018Q1

REPORT INFORMATION
  Report Type: Spontaneous
  Country: GB (occurrence: GB)
  Receive Date: 20180327
  Receipt Date: 20180327
  Transmission Date: 20180509
  Serious: Yes (Other)
  Sender: FDA-Public Use
  Company Number: GB-TEVA-2018-GB-875619

PATIENT
  Age: 73 Year
  Sex: Female

DRUGS (2)
  1. MORPHINE [Suspect]
     Active Substance: MORPHINE
     Route: 065
     Dates: start: 20180126
  2. MORPHINE [Suspect]
     Active Substance: MORPHINE
     Route: 048
     Dates: start: 20180201

REACTIONS (2)
  - Confusional state [Recovered/Resolved]
  - Drug intolerance [Unknown]
